FAERS Safety Report 5619555-4 (Version None)
Quarter: 2008Q1

REPORT INFORMATION
  Report Type: 
  Country: None (occurrence: None)
  Receive Date: 20080205
  Receipt Date: 20080205
  Transmission Date: 20080703
  Serious: No
  Sender: FDA-Public Use
  Company Number: None

PATIENT
  Age: 25 Year
  Sex: Male
  Weight: 70.3075 kg

DRUGS (1)
  1. CIPROFLOXACIN 250MG UNKNOWN [Suspect]
     Indication: PROSTATITIS
     Dosage: 500MG 1 DAY PO
     Route: 048
     Dates: start: 20060101, end: 20060201

REACTIONS (6)
  - ANXIETY [None]
  - MUSCLE SPASMS [None]
  - NERVE INJURY [None]
  - PHARMACEUTICAL PRODUCT COMPLAINT [None]
  - SUICIDAL IDEATION [None]
  - TENDON PAIN [None]
